FAERS Safety Report 13084821 (Version 2)
Quarter: 2017Q1

REPORT INFORMATION
  Report Type: Spontaneous
  Country: JP (occurrence: JP)
  Receive Date: 20170104
  Receipt Date: 20170111
  Transmission Date: 20170428
  Serious: Yes (Other)
  Sender: FDA-Public Use
  Company Number: JP-OTSUKA-2016_029321

PATIENT
  Age: 4 Decade
  Sex: Female

DRUGS (1)
  1. SAMSCA 30 MG [Suspect]
     Active Substance: TOLVAPTAN
     Indication: CONGENITAL CYSTIC KIDNEY DISEASE
     Dosage: 30 MG, DAILY DOSE
     Route: 048
     Dates: start: 20160531

REACTIONS (2)
  - Serum ferritin decreased [Unknown]
  - Nephrogenic anaemia [Unknown]
